FAERS Safety Report 6322193-1 (Version None)
Quarter: 2009Q3

REPORT INFORMATION
  Report Type: 
  Country: None (occurrence: None)
  Receive Date: 20090821
  Receipt Date: 20090821
  Transmission Date: 20100115
  Serious: Yes (Hospitalization)
  Sender: FDA-Public Use
  Company Number: None

PATIENT
  Age: 58 Year
  Sex: Male
  Weight: 74 kg

DRUGS (1)
  1. VARENICLINE [Suspect]
     Indication: SCHIZOPHRENIA, PARANOID TYPE
     Dosage: 1 MG BID PO
     Route: 048
     Dates: start: 20090519, end: 20090730

REACTIONS (4)
  - DELUSION [None]
  - HYPOMANIA [None]
  - PSYCHIATRIC DECOMPENSATION [None]
  - PSYCHOTIC DISORDER [None]
